FAERS Safety Report 7999459-2 (Version None)
Quarter: 2011Q4

REPORT INFORMATION
  Report Type: 
  Country: None (occurrence: None)
  Receive Date: 20111221
  Receipt Date: 20111219
  Transmission Date: 20120403
  Serious: No
  Sender: FDA-Public Use
  Company Number: US-PFIZER INC-2011308096

PATIENT
  Sex: Female
  Weight: 54 kg

DRUGS (6)
  1. MEDROXYPROGESTERONE ACETATE [Suspect]
     Indication: MENSTRUAL DISCOMFORT
  2. ABILIFY [Concomitant]
     Dosage: UNK
  3. MEDROXYPROGESTERONE ACETATE [Suspect]
     Indication: CONTRACEPTION
     Dosage: 150 MG, EVERY 3 MONTHS
     Dates: start: 20110101
  4. KLONOPIN [Concomitant]
     Indication: ANXIETY
     Dosage: UNK
  5. SONATA [Concomitant]
     Dosage: UNK
  6. ADDERALL 5 [Concomitant]
     Indication: ATTENTION DEFICIT/HYPERACTIVITY DISORDER
     Dosage: UNK

REACTIONS (2)
  - INCORRECT DOSE ADMINISTERED [None]
  - GASTROOESOPHAGEAL REFLUX DISEASE [None]
